FAERS Safety Report 8202312-2 (Version None)
Quarter: 2012Q1

REPORT INFORMATION
  Report Type: 
  Country: None (occurrence: None)
  Receive Date: 20120312
  Receipt Date: 20110315
  Transmission Date: 20120608
  Serious: No
  Sender: FDA-Public Use
  Company Number: US-ABBOTT-11P-163-0712169-00

PATIENT
  Age: 52 Year
  Sex: Male
  Weight: 100.33 kg

DRUGS (1)
  1. DEPAKOTE [Suspect]
     Indication: CONVULSION PROPHYLAXIS
     Dates: start: 20040101

REACTIONS (4)
  - HYPERCHLORHYDRIA [None]
  - PRODUCT ODOUR ABNORMAL [None]
  - PRODUCT TASTE ABNORMAL [None]
  - VOMITING [None]
